FAERS Safety Report 6091343-7 (Version None)
Quarter: 2009Q1

REPORT INFORMATION
  Report Type: 
  Country: None (occurrence: None)
  Receive Date: 20090225
  Receipt Date: 20090218
  Transmission Date: 20090719
  Serious: Yes (Other)
  Sender: FDA-Public Use
  Company Number: BR-ROCHE-615467

PATIENT
  Sex: Male
  Weight: 74 kg

DRUGS (5)
  1. RIVOTRIL [Suspect]
     Indication: BIPOLAR DISORDER
     Dosage: OTHER INDICATION: DEPRESSION
     Route: 048
     Dates: start: 20060101, end: 20080101
  2. RIVOTRIL [Suspect]
     Dosage: DOSAGE REDUCED TO HALF TABLET PER DAY
     Route: 048
     Dates: start: 20080101
  3. AMLODIPINE [Concomitant]
     Indication: HYPERTENSION
     Dosage: SATRT DATE: 2003 OR 2004
     Route: 048
     Dates: start: 20030101
  4. HYGROTON [Concomitant]
     Indication: HYPERTENSION
     Route: 048
  5. ENALAPRIL [Concomitant]
     Indication: HYPERTENSION
     Route: 048
     Dates: start: 20020101

REACTIONS (5)
  - BLOOD PRESSURE INCREASED [None]
  - CATARACT [None]
  - CEREBROVASCULAR ACCIDENT [None]
  - INSOMNIA [None]
  - SOMNOLENCE [None]
